FAERS Safety Report 5254361-4 (Version None)
Quarter: 2007Q1

REPORT INFORMATION
  Report Type: 
  Country: None (occurrence: None)
  Receive Date: 20070302
  Receipt Date: 20070221
  Transmission Date: 20070707
  Serious: Yes (Hospitalization)
  Sender: FDA-Public Use
  Company Number: NL-ABBOTT-07P-114-0359951-00

PATIENT
  Sex: Female

DRUGS (5)
  1. CLARITHROMYCIN [Suspect]
     Indication: RESPIRATORY TRACT INFECTION
     Route: 048
     Dates: start: 20070130
  2. CLOPIDOGREL BISULFATE [Concomitant]
     Indication: DRUG USE FOR UNKNOWN INDICATION
     Route: 048
     Dates: start: 20070202
  3. CARBASALAATCALCIUM CARDIO PCH [Concomitant]
     Indication: DRUG USE FOR UNKNOWN INDICATION
     Route: 048
     Dates: start: 20070202
  4. METOPROLOL SUCCINATE [Concomitant]
     Indication: DRUG USE FOR UNKNOWN INDICATION
     Dosage: MGA 47.5MG
     Route: 048
     Dates: start: 20070202
  5. MESALAZINE [Concomitant]
     Indication: DRUG USE FOR UNKNOWN INDICATION

REACTIONS (1)
  - RENAL DISORDER [None]
